FAERS Safety Report 22711899 (Version 4)
Quarter: 2023Q4

REPORT INFORMATION
  Report Type: Spontaneous
  Country: US (occurrence: US)
  Receive Date: 20230717
  Receipt Date: 20231207
  Transmission Date: 20240110
  Serious: No
  Sender: FDA-Public Use
  Company Number: US-PFIZER INC-PV202300121988

PATIENT
  Age: 10 Year
  Sex: Male
  Weight: 28.118 kg

DRUGS (1)
  1. GENOTROPIN [Suspect]
     Active Substance: SOMATROPIN
     Indication: Growth disorder
     Dosage: 1.6 MG, DAILY
     Dates: start: 202209

REACTIONS (4)
  - Injection site pain [Unknown]
  - Drug dose omission by device [Unknown]
  - Device difficult to use [Unknown]
  - Device mechanical issue [Unknown]
